FAERS Safety Report 14542774 (Version 1)
Quarter: 2018Q1

REPORT INFORMATION
  Report Type: Spontaneous
  Country: CA (occurrence: CA)
  Receive Date: 20180216
  Receipt Date: 20180216
  Transmission Date: 20180509
  Serious: Yes (Hospitalization, Other)
  Sender: FDA-Public Use
  Company Number: CA-OTSUKA-DJ201305704

PATIENT
  Sex: Female
  Weight: 86.17 kg

DRUGS (5)
  1. ABILIFY [Suspect]
     Active Substance: ARIPIPRAZOLE
     Indication: PSYCHOTIC DISORDER
     Dosage: 1 DF, UNK
     Route: 048
  2. ABILIFY [Suspect]
     Active Substance: ARIPIPRAZOLE
     Indication: DEPRESSION
  3. ASPIRIN. [Concomitant]
     Active Substance: ASPIRIN
     Indication: CORONARY ARTERY OCCLUSION
     Dosage: 81 MG, UNK
     Route: 065
  4. LORAZEPAM. [Concomitant]
     Active Substance: LORAZEPAM
     Indication: PRODUCT USED FOR UNKNOWN INDICATION
     Dosage: 1 MG, PRN
     Route: 065
  5. ASPIRIN. [Concomitant]
     Active Substance: ASPIRIN
     Indication: ARTERIAL OCCLUSIVE DISEASE

REACTIONS (20)
  - Increased tendency to bruise [Unknown]
  - Performance status decreased [Unknown]
  - Anxiety [Unknown]
  - Fall [Unknown]
  - Constipation [Unknown]
  - Decreased activity [Unknown]
  - Affect lability [Unknown]
  - Liver disorder [Unknown]
  - Abdominal pain upper [Unknown]
  - Blood copper increased [Unknown]
  - Blood magnesium decreased [Unknown]
  - Suicidal ideation [Unknown]
  - Agitation [Unknown]
  - Anger [Unknown]
  - Micturition urgency [Unknown]
  - Breast pain [Unknown]
  - Paraesthesia [Unknown]
  - Nocturia [Unknown]
  - Gastrointestinal disorder [Unknown]
  - Tremor [Unknown]
